FAERS Safety Report 5074814-1 (Version None)
Quarter: 2006Q3

REPORT INFORMATION
  Report Type: 
  Country: None (occurrence: None)
  Receive Date: 20060809
  Receipt Date: 20060721
  Transmission Date: 20061208
  Serious: Yes (Hospitalization)
  Sender: FDA-Public Use
  Company Number: JP-BAYER-200613100GDS

PATIENT
  Age: 76 Year
  Sex: Female

DRUGS (1)
  1. 8-HOUR BAYER [Suspect]
     Indication: ARTERIOSCLEROSIS OBLITERANS
     Route: 065

REACTIONS (12)
  - BACK PAIN [None]
  - BLOOD PRESSURE DECREASED [None]
  - CERVIX CARCINOMA [None]
  - DEPRESSED LEVEL OF CONSCIOUSNESS [None]
  - GENERAL PHYSICAL HEALTH DETERIORATION [None]
  - HAEMATOMA [None]
  - HYPERCALCAEMIA [None]
  - HYSTEROCELE [None]
  - PELVIC MASS [None]
  - PROCEDURAL COMPLICATION [None]
  - SHUNT OCCLUSION [None]
  - VAGINAL ATRESIA [None]
